FAERS Safety Report 4970194-8 (Version None)
Quarter: 2006Q2

REPORT INFORMATION
  Report Type: 
  Country: None (occurrence: None)
  Receive Date: 20060412
  Receipt Date: 20060301
  Transmission Date: 20061013
  Serious: Yes (Hospitalization)
  Sender: FDA-Public Use
  Company Number: HQWYE109002MAR06

PATIENT
  Sex: Female
  Weight: 46 kg

DRUGS (7)
  1. ENBREL [Suspect]
     Indication: RHEUMATOID ARTHRITIS
     Route: 058
     Dates: start: 20050601, end: 20051126
  2. TRIAMCINOLONE ACETONIDE [Concomitant]
     Indication: RHEUMATOID ARTHRITIS
     Dosage: UNKNOWN (INJECTION)
     Route: 065
  3. ONE-ALPHA [Concomitant]
     Dosage: UNKNOWN
     Route: 048
  4. GLICLAZIDE [Concomitant]
     Dosage: UNKNOWN
     Route: 048
  5. GASTER [Concomitant]
     Dosage: UNKNOWN
     Route: 048
  6. CYANOCOBALAMIN [Concomitant]
     Dosage: UNKNOWN
     Route: 048
  7. VOLTAREN [Concomitant]
     Indication: RHEUMATOID ARTHRITIS
     Dosage: UNKNOWN
     Route: 054

REACTIONS (2)
  - GOITRE [None]
  - HYPERTHYROIDISM [None]
